FAERS Safety Report 20557483 (Version 1)
Quarter: 2022Q1

REPORT INFORMATION
  Report Type: Other
  Country: GB (occurrence: None)
  Receive Date: 20220307
  Receipt Date: 20220307
  Transmission Date: 20220424
  Serious: Yes (Other)
  Sender: FDA-Public Use
  Company Number: GB-ROCHE-3037884

PATIENT
  Age: 42 Year
  Sex: Male

DRUGS (21)
  1. ATEZOLIZUMAB [Suspect]
     Active Substance: ATEZOLIZUMAB
     Indication: Non-small cell lung cancer metastatic
     Route: 065
  2. ATEZOLIZUMAB [Suspect]
     Active Substance: ATEZOLIZUMAB
     Indication: Metastases to lung
  3. ATEZOLIZUMAB [Suspect]
     Active Substance: ATEZOLIZUMAB
     Indication: Metastases to pleura
  4. ATEZOLIZUMAB [Suspect]
     Active Substance: ATEZOLIZUMAB
     Indication: Metastases to spine
  5. BEVACIZUMAB [Suspect]
     Active Substance: BEVACIZUMAB
     Indication: Non-small cell lung cancer metastatic
     Route: 065
  6. BEVACIZUMAB [Suspect]
     Active Substance: BEVACIZUMAB
     Indication: Metastases to lung
  7. BEVACIZUMAB [Suspect]
     Active Substance: BEVACIZUMAB
     Indication: Metastases to pleura
  8. BEVACIZUMAB [Suspect]
     Active Substance: BEVACIZUMAB
     Indication: Metastases to spine
  9. AFATINIB [Concomitant]
     Active Substance: AFATINIB
     Indication: Non-small cell lung cancer metastatic
     Dosage: 20 CYCLES
  10. AFATINIB [Concomitant]
     Active Substance: AFATINIB
     Indication: Metastases to lung
  11. AFATINIB [Concomitant]
     Active Substance: AFATINIB
     Indication: Metastases to pleura
  12. AFATINIB [Concomitant]
     Active Substance: AFATINIB
     Indication: Metastases to spine
  13. CARBOPLATIN [Concomitant]
     Active Substance: CARBOPLATIN
     Indication: Non-small cell lung cancer metastatic
  14. CARBOPLATIN [Concomitant]
     Active Substance: CARBOPLATIN
     Indication: Metastases to lung
  15. CARBOPLATIN [Concomitant]
     Active Substance: CARBOPLATIN
     Indication: Metastases to pleura
  16. CARBOPLATIN [Concomitant]
     Active Substance: CARBOPLATIN
     Indication: Metastases to spine
  17. PACLITAXEL [Concomitant]
     Active Substance: PACLITAXEL
     Indication: Non-small cell lung cancer metastatic
  18. PACLITAXEL [Concomitant]
     Active Substance: PACLITAXEL
     Indication: Metastases to lung
  19. PACLITAXEL [Concomitant]
     Active Substance: PACLITAXEL
     Indication: Metastases to pleura
  20. PACLITAXEL [Concomitant]
     Active Substance: PACLITAXEL
     Indication: Metastases to spine
  21. EDOXABAN [Concomitant]
     Active Substance: EDOXABAN
     Indication: Pulmonary embolism

REACTIONS (8)
  - Acute kidney injury [Unknown]
  - Immune-mediated hepatitis [Unknown]
  - Metastases to liver [Unknown]
  - Biliary tract disorder [Unknown]
  - Tooth abscess [Unknown]
  - Mucosal inflammation [Unknown]
  - Disease progression [Unknown]
  - Drug ineffective [Unknown]
